FAERS Safety Report 12348948 (Version 1)
Quarter: 2016Q2

REPORT INFORMATION
  Report Type: Spontaneous
  Country: US (occurrence: US)
  Receive Date: 20160509
  Receipt Date: 20160509
  Transmission Date: 20160815
  Serious: Yes (Hospitalization)
  Sender: FDA-Public Use
  Company Number: US-MALLINCKRODT-T201601465

PATIENT
  Age: 47 Year
  Sex: Female
  Weight: 63 kg

DRUGS (14)
  1. FLEXERIL [Suspect]
     Active Substance: CYCLOBENZAPRINE HYDROCHLORIDE
     Indication: MUSCLE SPASMS
     Dosage: 10MG TID
     Route: 048
     Dates: start: 20150930, end: 20151007
  2. SUBLIMAZE [Suspect]
     Active Substance: FENTANYL CITRATE
     Indication: PAIN
     Dosage: 50 MCG/ML EVERY THREE MINUTES PRN
     Route: 042
     Dates: start: 20151005, end: 20151005
  3. DILAUDID [Suspect]
     Active Substance: HYDROMORPHONE HYDROCHLORIDE
     Indication: PAIN
     Dosage: 1MG/ML; 0.5 MG EVERY 5 MINUTES PRN;
     Route: 042
     Dates: start: 20151005, end: 20151005
  4. ATIVAN [Suspect]
     Active Substance: LORAZEPAM
     Indication: NAUSEA
     Dosage: ONE MG EVERY 6 HOURS PRN
     Route: 048
     Dates: start: 20150930, end: 20151007
  5. VERSED [Suspect]
     Active Substance: MIDAZOLAM HYDROCHLORIDE
     Indication: PROCEDURAL PAIN
     Dosage: 4 MG; INTRAPROCEDURE
     Route: 042
     Dates: start: 20151005, end: 20151005
  6. PHENYLEPHRINE [Suspect]
     Active Substance: PHENYLEPHRINE\PHENYLEPHRINE HYDROCHLORIDE
     Indication: PROCEDURAL PAIN
     Dosage: ONE MG/10ML; ONCE
     Route: 065
     Dates: start: 20151005, end: 20151005
  7. ROXICODONE [Suspect]
     Active Substance: OXYCODONE HYDROCHLORIDE
     Indication: BREAKTHROUGH PAIN
     Dosage: 15 MG EVERY 4 HOURS PRN
     Route: 048
     Dates: start: 20151001, end: 20151007
  8. SUBLIMAZE [Suspect]
     Active Substance: FENTANYL CITRATE
     Dosage: 50 MCG/ML ONCE; INTRAPROCEDURE
     Route: 042
     Dates: start: 20151005, end: 20151005
  9. XANAX [Suspect]
     Active Substance: ALPRAZOLAM
  10. DURAGESIC [Suspect]
     Active Substance: FENTANYL
     Dosage: 50 MCG/ML, ONE PATCH EVERY 72 HOURS
     Dates: start: 20151001, end: 20151007
  11. DURAGESIC [Suspect]
     Active Substance: FENTANYL
     Indication: PRODUCT USED FOR UNKNOWN INDICATION
     Dosage: 100 MCG./ML; ONE PATCH EVERY 72 HOURS
     Route: 062
     Dates: start: 20151001, end: 20151007
  12. DILAUDID [Suspect]
     Active Substance: HYDROMORPHONE HYDROCHLORIDE
     Dosage: 2MG/2ML;ONE MG EVERY 2 HOURS PRN
     Route: 042
     Dates: start: 20151001, end: 20151006
  13. ATIVAN [Suspect]
     Active Substance: LORAZEPAM
     Indication: VOMITING
  14. DIPRIVAN [Suspect]
     Active Substance: PROPOFOL
     Indication: PROCEDURAL PAIN
     Dosage: 200 MG
     Route: 042
     Dates: start: 20151005, end: 20151005

REACTIONS (1)
  - Encephalopathy [Recovered/Resolved]

NARRATIVE: CASE EVENT DATE: 20161005
